FAERS Safety Report 19841103 (Version 1)
Quarter: 2021Q3

REPORT INFORMATION
  Report Type: Other
  Country: US (occurrence: US)
  Receive Date: 20210916
  Receipt Date: 20210916
  Transmission Date: 20211014
  Serious: No
  Sender: FDA-Public Use
  Company Number: US-LEADIANT BIOSCIENCES INC-2021STPI000035

PATIENT
  Sex: Female

DRUGS (1)
  1. MATULANE [Suspect]
     Active Substance: PROCARBAZINE HYDROCHLORIDE
     Indication: BRAIN NEOPLASM MALIGNANT
     Dosage: 50 MILLIGRAM, QD ON DAYS 8 TO 21 EVERY 56 DAYS
     Route: 048
     Dates: start: 20210201

REACTIONS (3)
  - Abdominal pain upper [Unknown]
  - Alopecia [Unknown]
  - Nausea [Unknown]
